FAERS Safety Report 10094868 (Version 1)
Quarter: 2014Q2

REPORT INFORMATION
  Report Type: Spontaneous
  Country: GB (occurrence: GB)
  Receive Date: 20140422
  Receipt Date: 20140422
  Transmission Date: 20141212
  Serious: Yes (Hospitalization, Other)
  Sender: FDA-Public Use
  Company Number: GB-TEVA-476105ISR

PATIENT
  Age: 51 Year
  Sex: Female

DRUGS (11)
  1. CITALOPRAM [Suspect]
     Indication: DEPRESSION
     Dosage: 40 MG, QD
     Route: 048
  2. CITALOPRAM [Suspect]
     Dosage: 40 MG X 36 TABLETS
     Route: 048
     Dates: start: 20130307, end: 20130307
  3. LEVOTHYROXINE [Suspect]
     Indication: HYPOTHYROIDISM
     Dosage: 100 MG, QD
     Route: 048
  4. LEVOTHYROXINE [Suspect]
     Dosage: 100 UG X 79
     Route: 048
     Dates: start: 20130307, end: 20130307
  5. NAPROXEN [Suspect]
     Indication: PAIN
     Dosage: 250 MG, BID
     Route: 048
     Dates: end: 20130307
  6. OMEPRAZOLE [Suspect]
     Indication: DYSPEPSIA
     Dosage: 20 MG, BID
     Route: 048
  7. OMEPRAZOLE [Suspect]
     Dosage: 20 MG X 25 TABLETS
     Route: 048
     Dates: start: 20130307, end: 20130307
  8. AIN457 [Suspect]
     Indication: PSORIASIS
     Dosage: 2 DF (150MG/300MG)
     Route: 058
     Dates: start: 20121214, end: 20130205
  9. PARACETAMOL [Suspect]
     Indication: PAIN
     Dosage: 500 MG X 16 TABLETS
     Route: 048
     Dates: start: 20130307, end: 20130307
  10. PARACETAMOL [Suspect]
     Dosage: 1 G, QD
     Route: 048
  11. AMOXICILLIN [Suspect]
     Dosage: 250 MG X 20 TABLETS
     Dates: start: 20130307, end: 20130307

REACTIONS (2)
  - Intentional overdose [Recovering/Resolving]
  - Suicide attempt [Recovering/Resolving]
